FAERS Safety Report 13054643 (Version 1)
Quarter: 2016Q4

REPORT INFORMATION
  Report Type: Spontaneous
  Country: US (occurrence: US)
  Receive Date: 20161222
  Receipt Date: 20161222
  Transmission Date: 20170207
  Serious: Yes (Other)
  Sender: FDA-Public Use
  Company Number: None

PATIENT
  Age: 50 Year
  Sex: Female
  Weight: 56.7 kg

DRUGS (1)
  1. DULOXETINE. [Suspect]
     Active Substance: DULOXETINE
     Route: 048

REACTIONS (7)
  - Nausea [None]
  - Product substitution issue [None]
  - Vomiting [None]
  - Diarrhoea [None]
  - Vision blurred [None]
  - Palpitations [None]
  - Tachyphrenia [None]

NARRATIVE: CASE EVENT DATE: 20161212
